FAERS Safety Report 9682781 (Version 1)
Quarter: 2013Q4

REPORT INFORMATION
  Report Type: Spontaneous
  Country: US (occurrence: US)
  Receive Date: 20131112
  Receipt Date: 20131112
  Transmission Date: 20140711
  Serious: Yes (Other)
  Sender: FDA-Public Use
  Company Number: PHEH2013US023322

PATIENT
  Sex: Female

DRUGS (1)
  1. VALTURNA [Suspect]
     Dates: start: 20101011, end: 20120719

REACTIONS (9)
  - Renal failure chronic [Unknown]
  - Cerebrovascular accident [Unknown]
  - Renal impairment [Unknown]
  - Blood potassium increased [Unknown]
  - Hypotension [Unknown]
  - Injury [Unknown]
  - Pain [Unknown]
  - Anxiety [Unknown]
  - Anhedonia [Unknown]
